FAERS Safety Report 22282436 (Version 1)
Quarter: 2023Q2

REPORT INFORMATION
  Report Type: Report from Study
  Country: DE (occurrence: DE)
  Receive Date: 20230504
  Receipt Date: 20230504
  Transmission Date: 20230722
  Serious: Yes (Death)
  Sender: FDA-Public Use
  Company Number: DE-MYLANLABS-2023M1043446

PATIENT
  Sex: Female

DRUGS (18)
  1. UNSPECIFIED INGREDIENT [Suspect]
     Active Substance: UNSPECIFIED INGREDIENT
     Indication: Product used for unknown indication
     Dosage: UNK
     Route: 065
  2. METHOTREXATE [Suspect]
     Active Substance: METHOTREXATE
     Indication: Rheumatoid arthritis
     Dosage: 7.5 MG (7.5 MILLIGRAM)
     Route: 065
     Dates: start: 20120710
  3. METHOTREXATE [Suspect]
     Active Substance: METHOTREXATE
     Dosage: 7.5 MG (7.5 MILLIGRAM)
     Route: 065
     Dates: start: 20121106
  4. METHOTREXATE [Suspect]
     Active Substance: METHOTREXATE
     Dosage: 7.5 MG (7.5 MILLIGRAM)
     Route: 065
     Dates: start: 20130131
  5. METHOTREXATE [Suspect]
     Active Substance: METHOTREXATE
     Dosage: 5 MG (5 MILLIGRAM)
     Route: 065
     Dates: start: 20130725
  6. METHOTREXATE [Suspect]
     Active Substance: METHOTREXATE
     Dosage: 7.5 MG (7.5 MILLIGRAM)
     Route: 065
     Dates: start: 20140121
  7. METHOTREXATE [Suspect]
     Active Substance: METHOTREXATE
     Dosage: 7.5 MG (7.5 MILLIGRAM)
     Route: 065
     Dates: start: 20140731
  8. METHOTREXATE [Suspect]
     Active Substance: METHOTREXATE
     Dosage: 5 MG (5 MILLIGRAM)
     Route: 065
     Dates: start: 20150205
  9. METHOTREXATE [Suspect]
     Active Substance: METHOTREXATE
     Dosage: 7.5 MG (7.5 MILLIGRAM)
     Route: 065
     Dates: start: 20150811
  10. METHOTREXATE [Suspect]
     Active Substance: METHOTREXATE
     Dosage: 5 MG (5 MILLIGRAM)
     Route: 065
     Dates: start: 20160411
  11. METHOTREXATE [Suspect]
     Active Substance: METHOTREXATE
     Dosage: 5 MG (5 MILLIGRAM)
     Route: 065
     Dates: start: 20170302
  12. SULFASALAZINE [Suspect]
     Active Substance: SULFASALAZINE
     Indication: Rheumatoid arthritis
     Dosage: 1000 MG (1000 MILLIGRAM)
     Route: 065
     Dates: start: 20170302
  13. SULFASALAZINE [Suspect]
     Active Substance: SULFASALAZINE
     Dosage: 1500 MG (1500 MILLIGRAM)
     Route: 065
     Dates: start: 20170727
  14. SULFASALAZINE [Suspect]
     Active Substance: SULFASALAZINE
     Dosage: 1000 MG (1000 MILLIGRAM)
     Route: 065
     Dates: start: 20180423
  15. SULFASALAZINE [Suspect]
     Active Substance: SULFASALAZINE
     Dosage: 2000 MG (2000 MILLIGRAM)
     Route: 065
     Dates: start: 20181025
  16. SULFASALAZINE [Suspect]
     Active Substance: SULFASALAZINE
     Dosage: 2000 MG (2000 MILLIGRAM)
     Route: 065
     Dates: start: 20190131
  17. SULFASALAZINE [Suspect]
     Active Substance: SULFASALAZINE
     Dosage: 2000 MG (2000 MILLIGRAM)
     Route: 065
     Dates: start: 20190723
  18. SULFASALAZINE [Suspect]
     Active Substance: SULFASALAZINE
     Dosage: 2000 MG (2000 MILLIGRAM)
     Route: 065
     Dates: start: 20200226

REACTIONS (1)
  - Anaemia [Fatal]
